FAERS Safety Report 21493627 (Version 11)
Quarter: 2023Q1

REPORT INFORMATION
  Report Type: Report from Study
  Country: IT (occurrence: IT)
  Receive Date: 20221021
  Receipt Date: 20230202
  Transmission Date: 20230417
  Serious: Yes (Life-Threatening, Hospitalization, Other)
  Sender: FDA-Public Use
  Company Number: IT-BRISTOL-MYERS SQUIBB COMPANY-2022-123246

PATIENT
  Age: 64 Year
  Sex: Female
  Weight: 54 kg

DRUGS (13)
  1. IPILIMUMAB [Suspect]
     Active Substance: IPILIMUMAB
     Indication: Colorectal cancer
     Dosage: LAST DOSE ON 16-AUG-2022
     Route: 042
     Dates: start: 20220816
  2. TRAMETINIB [Suspect]
     Active Substance: TRAMETINIB
     Indication: Colorectal cancer
     Route: 048
     Dates: start: 20220816, end: 20220831
  3. TRAMETINIB [Suspect]
     Active Substance: TRAMETINIB
     Route: 048
     Dates: start: 20221015, end: 20221017
  4. PANTOPRAZOLE [Concomitant]
     Active Substance: PANTOPRAZOLE
     Indication: Product used for unknown indication
     Route: 048
     Dates: start: 20220812
  5. ACETAMINOPHEN [Concomitant]
     Active Substance: ACETAMINOPHEN
     Indication: Pyrexia
     Route: 048
     Dates: start: 20220922
  6. AMOXICILLIN [Concomitant]
     Active Substance: AMOXICILLIN
     Indication: Escherichia infection
     Route: 048
     Dates: start: 20221005, end: 20221017
  7. AMOXICILLIN [Concomitant]
     Active Substance: AMOXICILLIN
     Indication: Urinary tract infection
  8. CLAVULANIC ACID [Concomitant]
     Active Substance: CLAVULANIC ACID
     Indication: Escherichia infection
     Route: 048
     Dates: start: 20221005, end: 20221017
  9. CLAVULANIC ACID [Concomitant]
     Active Substance: CLAVULANIC ACID
     Indication: Urinary tract infection
  10. GENTAMICIN [Concomitant]
     Active Substance: GENTAMICIN
     Indication: Product used for unknown indication
     Dosage: 1 DOSAGE FORM=UNITS NOS
     Route: 061
     Dates: start: 20220816, end: 20221005
  11. NISTATINE [Concomitant]
     Indication: Product used for unknown indication
     Dosage: 3 UNITS NOS
     Route: 048
     Dates: start: 20220920, end: 20221031
  12. IRON INTEGRATION [Concomitant]
     Indication: Product used for unknown indication
     Route: 048
     Dates: start: 20220920, end: 20221017
  13. DOXACICLINE [Concomitant]
     Indication: Product used for unknown indication
     Route: 048
     Dates: start: 20220816, end: 20221005

REACTIONS (7)
  - Aspartate aminotransferase increased [Recovered/Resolved]
  - Alanine aminotransferase increased [Recovered/Resolved]
  - Gamma-glutamyltransferase increased [Recovered/Resolved]
  - Drug-induced liver injury [Recovered/Resolved]
  - Blood bilirubin increased [Recovered/Resolved]
  - Pyrexia [Recovered/Resolved]
  - Lipase increased [Recovered/Resolved]

NARRATIVE: CASE EVENT DATE: 20221017
